FAERS Safety Report 5463566-9 (Version None)
Quarter: 2007Q3

REPORT INFORMATION
  Report Type: 
  Country: None (occurrence: None)
  Receive Date: 20070919
  Receipt Date: 20070913
  Transmission Date: 20080115
  Serious: Yes (Death)
  Sender: FDA-Public Use
  Company Number: 163-21880-07071010

PATIENT
  Age: 76 Year
  Sex: Male

DRUGS (1)
  1. REVLIMID [Suspect]
     Indication: ACUTE MYELOID LEUKAEMIA
     Dosage: 10 MG, QD, ORAL
     Route: 048
     Dates: start: 20061101, end: 20070601

REACTIONS (2)
  - EOSINOPHILIC LEUKAEMIA [None]
  - MALIGNANT NEOPLASM PROGRESSION [None]
